FAERS Safety Report 19188888 (Version 2)
Quarter: 2021Q2

REPORT INFORMATION
  Report Type: Spontaneous
  Country: GR (occurrence: GR)
  Receive Date: 20210428
  Receipt Date: 20210511
  Transmission Date: 20210717
  Serious: Yes (Hospitalization, Other)
  Sender: FDA-Public Use
  Company Number: GR-SUN PHARMACEUTICAL INDUSTRIES LTD-2021R1-293143

PATIENT
  Age: 42 Year
  Sex: Female

DRUGS (1)
  1. NORLEVO [Suspect]
     Active Substance: LEVONORGESTREL
     Indication: ORAL CONTRACEPTION
     Dosage: UNK 1.5 MG
     Route: 048
     Dates: start: 20201204

REACTIONS (1)
  - Pulmonary alveolar haemorrhage [Recovered/Resolved]
